FAERS Safety Report 6860850-9 (Version None)
Quarter: 2010Q3

REPORT INFORMATION
  Report Type: 
  Country: None (occurrence: None)
  Receive Date: 20100719
  Receipt Date: 20100719
  Transmission Date: 20110219
  Serious: Yes (Life-Threatening, Hospitalization)
  Sender: FDA-Public Use
  Company Number: None

PATIENT
  Age: 34 Year
  Sex: Female
  Weight: 61.2356 kg

DRUGS (1)
  1. CYMBALTA [Suspect]
     Indication: DEPRESSION
     Dosage: 60MG 1 X DAY PO
     Route: 048
     Dates: start: 20100525, end: 20100622

REACTIONS (9)
  - DEPRESSED MOOD [None]
  - DIZZINESS [None]
  - FAMILY STRESS [None]
  - FEAR [None]
  - FEELING ABNORMAL [None]
  - INTENTIONAL SELF-INJURY [None]
  - PARAESTHESIA [None]
  - SUICIDE ATTEMPT [None]
  - WITHDRAWAL SYNDROME [None]
